FAERS Safety Report 8836917 (Version 3)
Quarter: 2013Q3

REPORT INFORMATION
  Report Type: Spontaneous
  Country: US (occurrence: None)
  Receive Date: 20121010
  Receipt Date: 20130705
  Transmission Date: 20140515
  Serious: Yes (Other)
  Sender: FDA-Public Use
  Company Number: ADR-2012-01829

PATIENT
  Age: 49 Year
  Sex: Female

DRUGS (2)
  1. LIORESAL [Suspect]
     Indication: MUSCLE SPASTICITY
  2. LIORESAL [Suspect]
     Indication: MULTIPLE SCLEROSIS

REACTIONS (10)
  - Implant site swelling [None]
  - Implant site pain [None]
  - Drug ineffective [None]
  - Implant site reaction [None]
  - Implant site infection [None]
  - Device dislocation [None]
  - Implant site extravasation [None]
  - Urinary tract infection [None]
  - Muscle spasms [None]
  - Pain [None]
